FAERS Safety Report 13397548 (Version 1)
Quarter: 2017Q2

REPORT INFORMATION
  Report Type: Spontaneous
  Country: FR (occurrence: FR)
  Receive Date: 20170403
  Receipt Date: 20170403
  Transmission Date: 20170830
  Serious: Yes (Hospitalization)
  Sender: FDA-Public Use
  Company Number: FR-SA-2017SA051697

PATIENT
  Age: 79 Year
  Sex: Female
  Weight: 115 kg

DRUGS (13)
  1. EUPANTOL [Concomitant]
     Active Substance: PANTOPRAZOLE SODIUM
     Dosage: 1 TABLETS IN EVENING
  2. RIFADINE [Suspect]
     Active Substance: RIFAMPIN
     Route: 048
     Dates: start: 20170209
  3. CILASTATIN/IMIPENEM [Suspect]
     Active Substance: CILASTATIN SODIUM\IMIPENEM
     Dosage: POWDER FOR SOLUTION FOR INFUSION
     Route: 042
     Dates: start: 20170221, end: 20170316
  4. LEVOTHYROX [Concomitant]
     Active Substance: LEVOTHYROXINE
     Dosage: 75 MG IN MORNING
  5. PREVISCAN [Concomitant]
     Active Substance: FLUINDIONE
     Dosage: 3/4 IN EVEVNING
  6. FUNGIZONE [Suspect]
     Active Substance: AMPHOTERICIN B
     Route: 048
     Dates: start: 20170307
  7. LASILIX [Concomitant]
     Active Substance: FUROSEMIDE
     Dosage: STRENGTH : 40 MG
  8. BACTROBAN [Concomitant]
     Active Substance: MUPIROCIN\MUPIROCIN CALCIUM
     Dosage: 2% : 1 APPLICATION IN MORNING AFTERNOON EVENING
  9. CUBICIN [Suspect]
     Active Substance: DAPTOMYCIN
     Route: 042
     Dates: start: 20170209
  10. FLUCONAZOLE. [Suspect]
     Active Substance: FLUCONAZOLE
     Route: 048
     Dates: start: 20170307, end: 20170310
  11. MOVICOL [Concomitant]
     Active Substance: POLYETHYLENE GLYCOL 3350\POTASSIUM CHLORIDE\SODIUM BICARBONATE\SODIUM CHLORIDE
     Dosage: 1 SACHET IN MORNING
  12. NOVOMIX 30 [Concomitant]
     Active Substance: INSULIN ASPART
     Dosage: 25 IU IN MORNING
  13. CETIRIZINE [Concomitant]
     Active Substance: CETIRIZINE HYDROCHLORIDE
     Dosage: EVENING, 10 MG

REACTIONS (1)
  - Acute generalised exanthematous pustulosis [Not Recovered/Not Resolved]

NARRATIVE: CASE EVENT DATE: 20170311
